FAERS Safety Report 25182969 (Version 1)
Quarter: 2025Q2

REPORT INFORMATION
  Report Type: Other
  Country: PL (occurrence: PL)
  Receive Date: 20250410
  Receipt Date: 20250410
  Transmission Date: 20250717
  Serious: Yes (Hospitalization)
  Sender: ESJAY PHARMA
  Company Number: PL-ESJAY PHARMA-000508

PATIENT
  Age: 19 Year
  Sex: Female

DRUGS (3)
  1. ESCITALOPRAM [Suspect]
     Active Substance: ESCITALOPRAM OXALATE
     Indication: Depression
  2. DOBUTAMINE [Concomitant]
     Active Substance: DOBUTAMINE HYDROCHLORIDE
     Indication: Haemodynamic instability
  3. MILRINONE [Concomitant]
     Active Substance: MILRINONE
     Indication: Haemodynamic instability

REACTIONS (1)
  - Stress cardiomyopathy [Recovering/Resolving]
